FAERS Safety Report 20335752 (Version 1)
Quarter: 2022Q1

REPORT INFORMATION
  Report Type: Spontaneous
  Country: US (occurrence: None)
  Receive Date: 20220113
  Receipt Date: 20220113
  Transmission Date: 20220423
  Serious: Yes (Hospitalization)
  Sender: FDA-Public Use
  Company Number: None

PATIENT
  Age: 54 Year
  Sex: Female
  Weight: 78.9 kg

DRUGS (2)
  1. XELODA [Suspect]
     Active Substance: CAPECITABINE
     Indication: Breast cancer
     Dosage: FREQUENCY : TWICE A DAY;?
     Route: 048
     Dates: start: 20210725, end: 20220111
  2. XELODA [Concomitant]
     Active Substance: CAPECITABINE
     Dates: start: 20210725, end: 20220112

REACTIONS (1)
  - Hepatic mass [None]

NARRATIVE: CASE EVENT DATE: 20220112
